FAERS Safety Report 7815624-9 (Version None)
Quarter: 2011Q4

REPORT INFORMATION
  Report Type: 
  Country: None (occurrence: None)
  Receive Date: 20111014
  Receipt Date: 20111008
  Transmission Date: 20120403
  Serious: Yes (Hospitalization, Other)
  Sender: FDA-Public Use
  Company Number: US-ABBOTT-11P-163-0863614-00

PATIENT
  Age: 23 Year
  Sex: Female

DRUGS (7)
  1. IRON [Suspect]
     Indication: PRODUCT USED FOR UNKNOWN INDICATION
  2. HUMIRA [Suspect]
     Indication: CROHN'S DISEASE
     Dates: end: 20110830
  3. NORGESTIMATE AND ETHINYL ESTRADIOL [Concomitant]
     Indication: ORAL CONTRACEPTION
  4. B12 NASAL SPRAY [Concomitant]
     Indication: PRODUCT USED FOR UNKNOWN INDICATION
  5. HUMIRA [Suspect]
  6. PREDNISONE [Concomitant]
     Indication: PRODUCT USED FOR UNKNOWN INDICATION
     Dates: start: 20110901
  7. PREDNISONE [Concomitant]
     Dosage: TAPER DOWN 2.5 MG EVERY TWO WEEKS

REACTIONS (7)
  - MUSCLE SPASMS [None]
  - ABDOMINAL ABSCESS [None]
  - POSTOPERATIVE WOUND INFECTION [None]
  - INTESTINAL RESECTION [None]
  - INFLAMMATION [None]
  - INTESTINAL OBSTRUCTION [None]
  - ABNORMAL FAECES [None]
